FAERS Safety Report 8174888-5 (Version None)
Quarter: 2012Q1

REPORT INFORMATION
  Report Type: 
  Country: None (occurrence: None)
  Receive Date: 20120229
  Receipt Date: 20110523
  Transmission Date: 20120608
  Serious: No
  Sender: FDA-Public Use
  Company Number: US-GLAXOSMITHKLINE-A0928569A

PATIENT
  Age: 57 Year
  Sex: Female

DRUGS (6)
  1. TOPAMAX [Concomitant]
     Dosage: 100MG PER DAY
     Route: 048
  2. ANTI-INFLAMMATORY AGENT [Concomitant]
  3. WELLBUTRIN XL [Concomitant]
     Dosage: 150MG PER DAY
     Route: 048
  4. FEMHRT [Concomitant]
     Route: 048
  5. VALTREX [Suspect]
     Indication: GENITAL HERPES
     Dosage: 500MG PER DAY
     Route: 048
     Dates: start: 20110301
  6. FEMSTAT [Concomitant]

REACTIONS (5)
  - HEADACHE [None]
  - VAGINITIS BACTERIAL [None]
  - DRUG INEFFECTIVE [None]
  - GENITAL HERPES [None]
  - VAGINAL DISCHARGE [None]
